FAERS Safety Report 6241476-7 (Version None)
Quarter: 2009Q2

REPORT INFORMATION
  Report Type: 
  Country: None (occurrence: None)
  Receive Date: 20090623
  Receipt Date: 20030807
  Transmission Date: 20091009
  Serious: Yes (Death, Hospitalization)
  Sender: FDA-Public Use
  Company Number: GB-ROCHE-341923

PATIENT
  Sex: Male
  Weight: 87.6 kg

DRUGS (38)
  1. DACLIZUMAB [Suspect]
     Route: 042
     Dates: start: 20030629, end: 20030629
  2. DACLIZUMAB [Suspect]
     Route: 042
     Dates: start: 20030714
  3. DACLIZUMAB [Suspect]
     Route: 042
     Dates: start: 20030730, end: 20030828
  4. MYCOPHENOLATE MOFETIL [Suspect]
     Route: 048
     Dates: start: 20030630, end: 20030919
  5. CYCLOSPORINE [Suspect]
     Dosage: DRUG: CYCLOSPORINE
     Route: 048
     Dates: start: 20030630
  6. CYCLOSPORINE [Suspect]
     Route: 048
     Dates: start: 20030704
  7. CYCLOSPORINE [Suspect]
     Route: 048
     Dates: start: 20030710
  8. CYCLOSPORINE [Suspect]
     Route: 048
     Dates: start: 20030721
  9. CYCLOSPORINE [Suspect]
     Route: 048
     Dates: start: 20030814
  10. CYCLOSPORINE [Suspect]
     Route: 048
     Dates: start: 20030820
  11. METHYLPREDNISOLONE [Suspect]
     Route: 042
     Dates: start: 20030629
  12. METHYLPREDNISOLONE [Suspect]
     Route: 042
     Dates: start: 20030708, end: 20030711
  13. PREDNISOLONE [Suspect]
     Route: 048
     Dates: start: 20030630
  14. PREDNISOLONE [Suspect]
     Route: 048
     Dates: start: 20030730
  15. PREDNISOLONE [Suspect]
     Route: 048
     Dates: start: 20030812
  16. PREDNISOLONE [Suspect]
     Route: 048
     Dates: start: 20030903
  17. GANCICLOVIR [Concomitant]
     Dosage: DRUG: GANCYCLOVIR.
     Route: 048
     Dates: start: 20030702
  18. GANCICLOVIR [Concomitant]
     Route: 048
     Dates: start: 20030714
  19. GANCICLOVIR [Concomitant]
     Route: 048
     Dates: start: 20030806
  20. GANCICLOVIR [Concomitant]
     Route: 048
     Dates: start: 20030828
  21. ATENOLOL [Concomitant]
     Route: 048
     Dates: start: 20030630
  22. ATENOLOL [Concomitant]
     Route: 048
     Dates: start: 20030902
  23. AMLODIPINE [Concomitant]
     Route: 048
     Dates: start: 20030705
  24. OMEPRAZOLE [Concomitant]
     Route: 048
     Dates: start: 20030629
  25. OMEPRAZOLE [Concomitant]
     Route: 048
     Dates: start: 20030806
  26. METOCLOPRAMIDE [Concomitant]
     Route: 042
     Dates: start: 20030930
  27. AMIODARONE [Concomitant]
     Route: 048
     Dates: start: 20030630, end: 20030817
  28. CO-TRIMOXAZOLE [Concomitant]
     Route: 048
     Dates: start: 20030630
  29. LINEZOLID [Concomitant]
     Route: 042
     Dates: start: 20030714, end: 20030714
  30. ACTRAPID [Concomitant]
     Dosage: DRUG: ACTRAPID/DEXTROSE
     Route: 042
     Dates: start: 20030701
  31. AUGMENTIN [Concomitant]
     Route: 042
     Dates: start: 20030629
  32. DIGOXIN [Concomitant]
     Route: 048
     Dates: start: 20030816
  33. ENOXAPARIN SODIUM [Concomitant]
     Route: 058
     Dates: end: 20030605
  34. ENOXAPARIN SODIUM [Concomitant]
     Route: 058
     Dates: start: 20030630
  35. FRUSEMIDE [Concomitant]
     Route: 042
     Dates: start: 20030630
  36. FRUSEMIDE [Concomitant]
     Route: 042
     Dates: start: 20030701
  37. HEPARINISED SALINE [Concomitant]
     Dosage: DRUG: HEPARIN/SALINE
     Route: 042
     Dates: start: 20030705
  38. RANITIDINE [Concomitant]
     Route: 048
     Dates: start: 20030630

REACTIONS (8)
  - ABDOMINAL PAIN [None]
  - ANGINA UNSTABLE [None]
  - BRONCHOPULMONARY ASPERGILLOSIS [None]
  - CHEST PAIN [None]
  - DYSPNOEA [None]
  - PSYCHOTIC DISORDER [None]
  - SEPTIC SHOCK [None]
  - WHITE BLOOD CELL COUNT INCREASED [None]
